FAERS Safety Report 20032322 (Version 1)
Quarter: 2021Q4

REPORT INFORMATION
  Report Type: Spontaneous
  Country: US (occurrence: US)
  Receive Date: 20211103
  Receipt Date: 20211103
  Transmission Date: 20220303
  Serious: No
  Sender: FDA-Public Use
  Company Number: US-Fresenius Medical Care Renal Therapies Group-FMC-2109-001443

PATIENT
  Age: 70 Year
  Sex: Female

DRUGS (21)
  1. DELFLEX WITH DEXTROSE 1.5% LOW MAGNESIUM LOW CALCIUM [Suspect]
     Active Substance: CALCIUM CHLORIDE\DEXTROSE\MAGNESIUM CHLORIDE\SODIUM CHLORIDE\SODIUM LACTATE
     Indication: End stage renal disease
     Dosage: CCPD 7X WEEK, 6 EXCHANGES, FILL VOLUME 2500ML, DWELL TIME 1 HOUR 27 MIN, LAST FILL VOLUME 2000 ML, D
     Route: 033
  2. DELFLEX WITH DEXTROSE 2.5% LOW MAGNESIUM LOW CALCIUM [Suspect]
     Active Substance: CALCIUM CHLORIDE\DEXTROSE\MAGNESIUM CHLORIDE\SODIUM CHLORIDE\SODIUM LACTATE
     Indication: End stage renal disease
     Dosage: CCPD 7X WEEK, 6 EXCHANGES, FILL VOLUME 2500ML, DWELL TIME 1 HOUR 27 MIN, LAST FILL VOLUME 2000 ML, D
     Route: 033
  3. DELFLEX WITH DEXTROSE 4.25% LOW MAGNESIUM LOW CALCIUM [Suspect]
     Active Substance: CALCIUM CHLORIDE\DEXTROSE\MAGNESIUM CHLORIDE\SODIUM CHLORIDE\SODIUM LACTATE
     Indication: End stage renal disease
     Dosage: CCPD 7X WEEK, 6 EXCHANGES, FILL VOLUME 2500ML, DWELL TIME 1 HOUR 27 MIN, LAST FILL VOLUME 2000 ML, D
     Route: 033
  4. AMLODIPINE [Concomitant]
     Active Substance: AMLODIPINE BESYLATE
     Dosage: 2.5 MG, ORAL, 1 TABLET ONCE A DAY.
  5. ASCORBIC ACID [Concomitant]
     Active Substance: ASCORBIC ACID
     Dosage: 500MG, ORAL, 1 TABLET ONCE A DAY.
  6. ASPIRIN [Concomitant]
     Active Substance: ASPIRIN
     Dosage: 81 MG, ORAL , 1 TABLET ONCE A DAY.
  7. CARVEDILOL [Concomitant]
     Active Substance: CARVEDILOL
     Dosage: 25MG, ORAL, 1 TABLET TWICE A DAY.
  8. ELIQUIS [Concomitant]
     Active Substance: APIXABAN
     Dosage: 2.5MG, ORAL, 1 TABLET TWICE A DAY.
  9. FUROSEMIDE [Concomitant]
     Active Substance: FUROSEMIDE
     Dosage: 40MG, ORAL, 2 TABLET TWICE A DAY.
  10. GENTAMICIN [Concomitant]
     Active Substance: GENTAMICIN
     Dosage: 0.38, OPHTHALMIC, 1 DROP TWICE A DAY FOR 10 DAYS.
  11. METOLAZONE [Concomitant]
     Active Substance: METOLAZONE
     Dosage: 2.5MG, ORAL, 1 TABLET TWICE A WEEK.
  12. MIRALAX [Concomitant]
     Active Substance: POLYETHYLENE GLYCOL 3350
     Dosage: 17 GRAM, ORAL, 1 PACKET ONCE A DAY.
  13. NOVOLIN N NPH U-100 INSULIN [Concomitant]
     Dosage: NOVOLIN N NPH U-100 INSULIN (100 UNIT/ML), SUBQ, 40 UNITS EVERY EVENING AND 90 UNITS EVERY MORNING.
  14. NOVOLIN R [Concomitant]
     Active Substance: INSULIN HUMAN
     Dosage: NOVOLIN R REGULAR U-100 INSULIN 100 UNITS/ML, INJ 11 UNITS BREAKFAST, 11 UNITS LUNCH, 14 UNITS SUPPE
  15. RENVELA [Concomitant]
     Active Substance: SEVELAMER CARBONATE
     Dosage: 800MG ORAL, 1 TABLET TWICE A DAY.
  16. SODIUM BICARBONATE [Concomitant]
     Active Substance: SODIUM BICARBONATE
     Dosage: 650MG ORAL, 1 TABLET TWICE A DAY.
  17. VITAMIN D3 [Concomitant]
     Active Substance: CHOLECALCIFEROL
     Dosage: 25MCG, ORAL, 1 CAPSULE TWICE A DAY.
  18. DIPHENHYDRAMINE [Concomitant]
     Active Substance: DIPHENHYDRAMINE
     Dosage: 50MG IVP (07/30/2021-07/292022).
  19. EPINEPHRINE [Concomitant]
     Active Substance: EPINEPHRINE
     Dosage: 1:1000 (ADRENALINE 1MG/1ML) 0.3MG IM (07/30/2021-07/29/2022).
  20. METHYLPREDNISOLONE [Concomitant]
     Active Substance: METHYLPREDNISOLONE
     Dosage: 125MG IM (07/30/2021-07/29/2022).
  21. SODIUM CHLORIDE [Concomitant]
     Active Substance: SODIUM CHLORIDE
     Dosage: 0.9%, 200ML IV (07/30/2021-07/29/2022).

REACTIONS (1)
  - Abdominal hernia [Not Recovered/Not Resolved]
